FAERS Safety Report 6129283-7 (Version None)
Quarter: 2009Q1

REPORT INFORMATION
  Report Type: 
  Country: None (occurrence: None)
  Receive Date: 20090320
  Receipt Date: 20090311
  Transmission Date: 20090719
  Serious: No
  Sender: FDA-Public Use
  Company Number: 2009-193171-NL

PATIENT
  Age: 34 Year
  Sex: Female

DRUGS (4)
  1. FOLLITROPIN BETA [Suspect]
     Dosage: SUBCUTANEOUS
     Route: 058
     Dates: start: 20071001, end: 20071101
  2. FOLLITROPIN BETA [Suspect]
     Dosage: SUBCUTANEOUS
     Route: 058
     Dates: start: 20080201, end: 20080501
  3. FOLLITROPIN BETA [Suspect]
     Dosage: SUBCUTANEOUS
     Route: 058
     Dates: start: 20070201
  4. MENOTROPINS [Concomitant]

REACTIONS (1)
  - MULTIPLE SCLEROSIS [None]
